FAERS Safety Report 19304509 (Version 1)
Quarter: 2021Q2

REPORT INFORMATION
  Report Type: Spontaneous
  Country: FR (occurrence: FR)
  Receive Date: 20210526
  Receipt Date: 20210526
  Transmission Date: 20210717
  Serious: Yes (Hospitalization)
  Sender: FDA-Public Use
  Company Number: FR-SUN PHARMACEUTICAL INDUSTRIES LTD-2021RR-298195

PATIENT
  Age: 91 Year
  Sex: Male
  Weight: 46 kg

DRUGS (2)
  1. LANSOPRAZOLE MYL% [Concomitant]
     Indication: ABDOMINAL PAIN UPPER
     Dosage: 30 MILLIGRAM, DAILY
     Route: 048
     Dates: start: 20210429
  2. PANTOPRAZOLE [Suspect]
     Active Substance: PANTOPRAZOLE
     Indication: ABDOMINAL PAIN UPPER
     Dosage: 40 MILLIGRAM, DAILY
     Route: 042
     Dates: start: 20210426, end: 20210429

REACTIONS (1)
  - Hallucination [Recovered/Resolved]

NARRATIVE: CASE EVENT DATE: 20210429
